FAERS Safety Report 15609907 (Version 1)
Quarter: 2018Q4

REPORT INFORMATION
  Report Type: Spontaneous
  Country: FR (occurrence: FR)
  Receive Date: 20181113
  Receipt Date: 20181113
  Transmission Date: 20190205
  Serious: Yes (Death, Hospitalization)
  Sender: FDA-Public Use
  Company Number: FR-ACCORD-091989

PATIENT
  Age: 64 Year
  Sex: Female
  Weight: 62 kg

DRUGS (30)
  1. CYTARABINE SANDOZ [Suspect]
     Active Substance: CYTARABINE
     Indication: DIFFUSE LARGE B-CELL LYMPHOMA
     Dosage: STRENGTH 100 MG / ML?ADMINISTRATION FROM D1 TO D3
     Route: 041
     Dates: start: 20180522, end: 20180524
  2. HOLOXAN [Suspect]
     Active Substance: IFOSFAMIDE
     Indication: DIFFUSE LARGE B-CELL LYMPHOMA
     Dosage: ADMINISTRATION FROM D1 TO D5
     Route: 041
     Dates: start: 20180522, end: 20180526
  3. PANTOPRAZOLE [Concomitant]
     Active Substance: PANTOPRAZOLE
  4. CLORAZEPIC ACID [Concomitant]
     Active Substance: CLORAZEPIC ACID
  5. NOVORAPID [Concomitant]
     Active Substance: INSULIN ASPART
  6. ACTISKENAN [Concomitant]
     Active Substance: MORPHINE SULFATE
     Dosage: STRENGTH 10 MG
  7. VALACICLOVIR [Concomitant]
     Active Substance: VALACYCLOVIR HYDROCHLORIDE
  8. GRANULOCYTE COLONY STIMULATING [Concomitant]
     Active Substance: GRANULOCYTE COLONY-STIMULATING FACTOR NOS
  9. SKENAN [Concomitant]
     Active Substance: MORPHINE SULFATE
     Dosage: STRENGTH 30 MG
  10. ETOPOSIDE MYLAN [Suspect]
     Active Substance: ETOPOSIDE
     Indication: DIFFUSE LARGE B-CELL LYMPHOMA
     Dosage: STRENGTH 20 MG / ML?ADMINISTRATION FROM D1 TO D3
     Route: 041
     Dates: start: 20180522, end: 20180524
  11. SULFAMETHOXAZOLE/SULFAMETHOXAZOLE SODIUM [Concomitant]
  12. TRAMADOL. [Concomitant]
     Active Substance: TRAMADOL
  13. UROMITEXAN [Concomitant]
     Active Substance: MESNA
  14. CHIBRO CADRON [Concomitant]
     Active Substance: DEXAMETHASONE SODIUM PHOSPHATE\NEOMYCIN SULFATE
  15. GAVISCON [Concomitant]
     Active Substance: ALUMINUM HYDROXIDE\MAGNESIUM CARBONATE
  16. ZOPHREN [Concomitant]
     Active Substance: ONDANSETRON
  17. PREDNISONE. [Concomitant]
     Active Substance: PREDNISONE
  18. NEFOPAM [Concomitant]
     Active Substance: NEFOPAM
  19. METHOTREXATE. [Suspect]
     Active Substance: METHOTREXATE
     Indication: DIFFUSE LARGE B-CELL LYMPHOMA
     Dosage: ADMINISTRATION AT D2
     Route: 041
     Dates: start: 20180523, end: 20180523
  20. TRUXIMA [Suspect]
     Active Substance: RITUXIMAB-ABBS
     Indication: DIFFUSE LARGE B-CELL LYMPHOMA
     Dosage: ADMINISTRATION AT D1
     Route: 041
     Dates: start: 20180522, end: 20180522
  21. PARACETAMOL [Concomitant]
     Active Substance: ACETAMINOPHEN
  22. MOVICOL [Concomitant]
     Active Substance: POLYETHYLENE GLYCOL 3350\POTASSIUM CHLORIDE\SODIUM BICARBONATE\SODIUM CHLORIDE
  23. IPRATROPIUM [Concomitant]
     Active Substance: IPRATROPIUM
  24. CEFEPIME [Suspect]
     Active Substance: CEFEPIME HYDROCHLORIDE
     Indication: FEBRILE NEUTROPENIA
     Dosage: STRENGTH 2 G
     Route: 042
     Dates: start: 20180523, end: 20180528
  25. FUROSEMIDE. [Concomitant]
     Active Substance: FUROSEMIDE
  26. METFORMIN [Concomitant]
     Active Substance: METFORMIN HYDROCHLORIDE
  27. POTASSIUM [Concomitant]
     Active Substance: POTASSIUM
  28. TRIMETHOPRIM. [Concomitant]
     Active Substance: TRIMETHOPRIM
  29. CLONAZEPAM. [Concomitant]
     Active Substance: CLONAZEPAM
  30. SALBUTAMOL [Concomitant]
     Active Substance: ALBUTEROL

REACTIONS (3)
  - Toxic encephalopathy [Fatal]
  - Polyuria [Fatal]
  - Electrolyte imbalance [Fatal]

NARRATIVE: CASE EVENT DATE: 20180527
